FAERS Safety Report 9426155 (Version 1)
Quarter: 2013Q3

REPORT INFORMATION
  Report Type: Spontaneous
  Country: US (occurrence: US)
  Receive Date: 20130730
  Receipt Date: 20130730
  Transmission Date: 20140515
  Serious: No
  Sender: FDA-Public Use
  Company Number: US-BIOGENIDEC-2013BI069463

PATIENT
  Age: 62 Year
  Sex: Female

DRUGS (9)
  1. AVONEX [Suspect]
     Indication: MULTIPLE SCLEROSIS
     Route: 030
     Dates: start: 20130213
  2. AMLODIPINE BESYLATE [Concomitant]
  3. BENAZEPRIL HCL [Concomitant]
  4. TYLENOL PM EXTRA STRENGTH [Concomitant]
  5. CLONIDINE HCL [Concomitant]
  6. SYNTHROID [Concomitant]
  7. ADVIL [Concomitant]
  8. IMITREX [Concomitant]
  9. CALCIUM [Concomitant]

REACTIONS (2)
  - Injection site bruising [Unknown]
  - Asthenia [Unknown]
